FAERS Safety Report 7285851-0 (Version None)
Quarter: 2011Q1

REPORT INFORMATION
  Report Type: 
  Country: None (occurrence: None)
  Receive Date: 20110210
  Receipt Date: 20110204
  Transmission Date: 20110831
  Serious: Yes (Hospitalization, Other)
  Sender: FDA-Public Use
  Company Number: CZ-ABBOTT-11P-217-0701110-00

PATIENT
  Sex: Female
  Weight: 62 kg

DRUGS (13)
  1. VASOCARDIN [Concomitant]
     Indication: PRODUCT USED FOR UNKNOWN INDICATION
  2. HUMALOG [Concomitant]
     Indication: PRODUCT USED FOR UNKNOWN INDICATION
     Dosage: 14U IN MORNING, 10U AT NOON, 6U IN EVENING
  3. ZEMPLAR [Suspect]
     Indication: HYPERPARATHYROIDISM SECONDARY
     Route: 048
     Dates: start: 20101203, end: 20110104
  4. TENAXUM [Concomitant]
     Indication: PRODUCT USED FOR UNKNOWN INDICATION
  5. TULIP [Concomitant]
     Indication: PRODUCT USED FOR UNKNOWN INDICATION
  6. LANTUS [Concomitant]
     Indication: PRODUCT USED FOR UNKNOWN INDICATION
  7. CITALEC [Concomitant]
     Indication: PRODUCT USED FOR UNKNOWN INDICATION
  8. ORCAL [Concomitant]
     Indication: PRODUCT USED FOR UNKNOWN INDICATION
  9. EUTHYROX [Concomitant]
     Indication: PRODUCT USED FOR UNKNOWN INDICATION
     Route: 048
  10. FURON [Concomitant]
     Indication: PRODUCT USED FOR UNKNOWN INDICATION
  11. ATRIAL NATRIURETIC PEPTIDE [Concomitant]
     Indication: PRODUCT USED FOR UNKNOWN INDICATION
  12. AMLODIPINE BESYLATE [Concomitant]
     Indication: PRODUCT USED FOR UNKNOWN INDICATION
  13. ANOPYRIN [Concomitant]
     Indication: PRODUCT USED FOR UNKNOWN INDICATION

REACTIONS (2)
  - LUMBAR VERTEBRAL FRACTURE [None]
  - FALL [None]
